FAERS Safety Report 4454374-6 (Version None)
Quarter: 2004Q3

REPORT INFORMATION
  Report Type: 
  Country: None (occurrence: None)
  Receive Date: 20040826
  Receipt Date: 20040527
  Transmission Date: 20050211
  Serious: No
  Sender: FDA-Public Use
  Company Number: WAES 0405USA02109

PATIENT
  Age: 75 Year
  Sex: Female

DRUGS (3)
  1. ZETIA [Suspect]
     Dosage: 10MG, DAILY; PO
     Route: 048
     Dates: start: 20040513, end: 20040527
  2. AVAPRO [Concomitant]
  3. EVISTA [Concomitant]

REACTIONS (4)
  - AGITATION [None]
  - BACK PAIN [None]
  - FATIGUE [None]
  - HEADACHE [None]
